FAERS Safety Report 13419215 (Version 1)
Quarter: 2017Q2

REPORT INFORMATION
  Report Type: Spontaneous
  Country: US (occurrence: US)
  Receive Date: 20170407
  Receipt Date: 20170407
  Transmission Date: 20170830
  Serious: Yes (Other)
  Sender: FDA-Public Use
  Company Number: US-ASTRAZENECA-2017SE34986

PATIENT
  Age: 84 Year
  Sex: Female
  Weight: 72.6 kg

DRUGS (3)
  1. PRILOSEC [Suspect]
     Active Substance: OMEPRAZOLE MAGNESIUM
     Indication: ULCER
     Dosage: UNKNOWN
     Route: 048
  2. VITAMINS NOS [Concomitant]
     Active Substance: VITAMINS
  3. NEXIUM [Suspect]
     Active Substance: ESOMEPRAZOLE MAGNESIUM
     Indication: ULCER
     Route: 048

REACTIONS (5)
  - Retinal detachment [Unknown]
  - Binocular eye movement disorder [Unknown]
  - Pain [Unknown]
  - Drug dose omission [Unknown]
  - Body height decreased [Unknown]

NARRATIVE: CASE EVENT DATE: 2016
